FAERS Safety Report 4368496-1 (Version None)
Quarter: 2004Q2

REPORT INFORMATION
  Report Type: 
  Country: None (occurrence: None)
  Receive Date: 20040602
  Receipt Date: 20031121
  Transmission Date: 20050107
  Serious: No
  Sender: FDA-Public Use
  Company Number: US-GLAXOSMITHKLINE-A0440843A

PATIENT
  Age: 7 Year
  Sex: Female

DRUGS (3)
  1. AUGMENTIN [Suspect]
     Indication: OTITIS MEDIA
     Route: 048
     Dates: start: 20031120, end: 20031121
  2. PRILOSEC [Concomitant]
  3. LAMICTAL [Concomitant]

REACTIONS (1)
  - URINARY RETENTION [None]
